FAERS Safety Report 21804758 (Version 1)
Quarter: 2023Q1

REPORT INFORMATION
  Report Type: Other
  Country: US (occurrence: None)
  Receive Date: 20230102
  Receipt Date: 20230102
  Transmission Date: 20230418
  Serious: Yes (Other)
  Sender: FDA-Public Use
  Company Number: US-ROCHE-3237170

PATIENT
  Age: 65 Year
  Sex: Female

DRUGS (2)
  1. XELODA [Suspect]
     Active Substance: CAPECITABINE
     Indication: Breast cancer female
     Dosage: TAKE 3 TABLET(S) BY MOUTH TWICE A DAY FOR 14 DAY(S), THEN REST FOR 7 DAY(S) EACH 21 DAY CYCLE
     Route: 048
  2. XELODA [Suspect]
     Active Substance: CAPECITABINE
     Dosage: TAKE 3 TABLET(S) BY MOUTH TWICE A DAY FOR 14 DAY(S), THEN REST FOR 7 DAY(S) EACH 21 DAY CYCLE
     Route: 048

REACTIONS (1)
  - Rib fracture [Unknown]
